FAERS Safety Report 11395980 (Version 1)
Quarter: 2015Q3

REPORT INFORMATION
  Report Type: Spontaneous
  Country: US (occurrence: None)
  Receive Date: 20150818
  Receipt Date: 20150818
  Transmission Date: 20151125
  Serious: No
  Sender: FDA-Public Use
  Company Number: None

PATIENT
  Age: 30 Year
  Sex: Female
  Weight: 98.43 kg

DRUGS (2)
  1. MULTI-VITAMIN [Concomitant]
     Active Substance: .ALPHA.-TOCOPHEROL ACETATE, DL-\ASCORBIC ACID\CYANOCOBALAMIN\FLUORIDE ION\FOLIC ACID\NIACIN\PYRIDOXINE\RIBOFLAVIN\THIAMINE\VITAMIN A\VITAMIN D
  2. NEXPLANON [Suspect]
     Active Substance: ETONOGESTREL
     Indication: CONTRACEPTION
     Dosage: GIVEN INTO/UNDER THE SKIN SUBDERMAL IMPLANT
     Dates: start: 20121025, end: 20150817

REACTIONS (15)
  - Fatigue [None]
  - Memory impairment [None]
  - Implant site pain [None]
  - Diarrhoea [None]
  - Aphasia [None]
  - Polymenorrhoea [None]
  - Back pain [None]
  - Dyspareunia [None]
  - Impaired work ability [None]
  - Headache [None]
  - Dysmenorrhoea [None]
  - Flatulence [None]
  - Abdominal distension [None]
  - Impatience [None]
  - Irritability [None]

NARRATIVE: CASE EVENT DATE: 20140807
